FAERS Safety Report 10429855 (Version 1)
Quarter: 2014Q3

REPORT INFORMATION
  Report Type: Spontaneous
  Country: FR (occurrence: FR)
  Receive Date: 20140904
  Receipt Date: 20140904
  Transmission Date: 20150326
  Serious: Yes (Hospitalization)
  Sender: FDA-Public Use
  Company Number: FR-SA-2014SA116470

PATIENT
  Age: 61 Year
  Sex: Male
  Weight: 81 kg

DRUGS (16)
  1. NEXAVAR [Suspect]
     Active Substance: SORAFENIB
     Indication: HEPATOCELLULAR CARCINOMA
     Route: 065
     Dates: start: 20140220
  2. URBANYL [Concomitant]
     Active Substance: CLOBAZAM
  3. NOVORAPID [Concomitant]
     Active Substance: INSULIN ASPART
  4. NEXAVAR [Suspect]
     Active Substance: SORAFENIB
     Indication: HEPATOCELLULAR CARCINOMA
     Dosage: DOSE:DECREASE THE DAILY DOSE NAD THEN PROGRESSIVELY INCREASE THE DAILY DOSE TO FOUR TABLETS DAILY
     Route: 065
  5. NOVOMIX [Concomitant]
     Active Substance: INSULIN ASPART
  6. CARDENSIEL [Concomitant]
     Active Substance: BISOPROLOL FUMARATE
  7. EMLA [Concomitant]
     Active Substance: LIDOCAINE\PRILOCAINE
     Dosage: 2 OR 3 TIMES WEEKLY
  8. LASILIX [Concomitant]
     Active Substance: FUROSEMIDE
  9. MOPRAL [Concomitant]
     Active Substance: OMEPRAZOLE SODIUM
  10. COVERSYL [Concomitant]
     Active Substance: PERINDOPRIL
  11. KARDEGIC [Concomitant]
     Active Substance: ASPIRIN LYSINE
  12. RESIKALI [Concomitant]
     Dosage: 1 SPOON DAILY 10 MIN BEFORE MEAL
  13. APROVEL [Suspect]
     Active Substance: IRBESARTAN
     Dosage: STRENGTH:150 MG
     Route: 065
     Dates: end: 201404
  14. NEXAVAR [Suspect]
     Active Substance: SORAFENIB
     Indication: HEPATOCELLULAR CARCINOMA
     Dosage: DOSE:DECREASE THE DAILY DOSE NAD THEN PROGRESSIVELY INCREASE THE DAILY DOSE TO FOUR TABLETS DAILY
     Route: 065
  15. LEVOTHYROX [Concomitant]
     Active Substance: LEVOTHYROXINE
  16. TAHOR [Concomitant]
     Active Substance: ATORVASTATIN CALCIUM

REACTIONS (5)
  - Decreased appetite [Unknown]
  - Hypotension [Unknown]
  - Dyspnoea [Unknown]
  - Diarrhoea [Unknown]
  - Asthenia [Unknown]

NARRATIVE: CASE EVENT DATE: 201402
